FAERS Safety Report 9501995 (Version 1)
Quarter: 2013Q3

REPORT INFORMATION
  Report Type: Spontaneous
  Country: RU (occurrence: RU)
  Receive Date: 20130905
  Receipt Date: 20130905
  Transmission Date: 20140515
  Serious: Yes (Other)
  Sender: FDA-Public Use
  Company Number: RU-B.I. PHARMACEUTICALS,INC./RIDGEFIELD-2013-BI-27434YA

PATIENT
  Age: 74 Year
  Sex: Male

DRUGS (4)
  1. OMNIC [Suspect]
     Indication: BENIGN PROSTATIC HYPERPLASIA
     Dosage: 0.4 MG
     Route: 048
     Dates: start: 201305, end: 201305
  2. EUTHYROX [Concomitant]
  3. LIPTONORM [Concomitant]
  4. UNSPECIFIED ANTIDIABETIC DRUG [Concomitant]
     Indication: TYPE 2 DIABETES MELLITUS

REACTIONS (4)
  - Loss of consciousness [Recovered/Resolved]
  - Vomiting [Recovered/Resolved]
  - Nausea [Recovered/Resolved]
  - Dizziness [Recovered/Resolved]
